FAERS Safety Report 4661771-2 (Version None)
Quarter: 2005Q2

REPORT INFORMATION
  Report Type: 
  Country: None (occurrence: None)
  Receive Date: 20050511
  Receipt Date: 20050511
  Transmission Date: 20051028
  Serious: Yes (Hospitalization, Other)
  Sender: FDA-Public Use
  Company Number: None

PATIENT
  Sex: Male
  Weight: 77.9 kg

DRUGS (3)
  1. GABAPENTIN [Suspect]
     Indication: NEUROPATHIC PAIN
     Dosage: 300MG PO BID
     Route: 048
  2. MECLIZE [Concomitant]
  3. BORTEZOMIB [Concomitant]

REACTIONS (3)
  - DIZZINESS [None]
  - FALL [None]
  - HALLUCINATION [None]
